FAERS Safety Report 13702793 (Version 1)
Quarter: 2017Q2

REPORT INFORMATION
  Report Type: Spontaneous
  Country: ES (occurrence: ES)
  Receive Date: 20170629
  Receipt Date: 20170629
  Transmission Date: 20170830
  Serious: Yes (Hospitalization, Other)
  Sender: FDA-Public Use
  Company Number: ES-FRESENIUS KABI-FK201705471

PATIENT
  Age: 49 Year
  Sex: Female

DRUGS (2)
  1. DEXAMETHASONE INJECTION (MANUFACTURER UNKNOWN) [Suspect]
     Active Substance: DEXAMETHASONE
     Indication: BRAIN OEDEMA
  2. DEXAMETHASONE INJECTION (MANUFACTURER UNKNOWN) [Suspect]
     Active Substance: DEXAMETHASONE
     Indication: HEADACHE
     Route: 065
     Dates: start: 2015

REACTIONS (2)
  - Febrile neutropenia [Unknown]
  - Herpes simplex encephalitis [Unknown]

NARRATIVE: CASE EVENT DATE: 2015
